FAERS Safety Report 7383138-9 (Version None)
Quarter: 2011Q1

REPORT INFORMATION
  Report Type: 
  Country: None (occurrence: None)
  Receive Date: 20110325
  Receipt Date: 20110325
  Transmission Date: 20110831
  Serious: Yes (Other)
  Sender: FDA-Public Use
  Company Number: None

PATIENT
  Age: 73 Year
  Sex: Male
  Weight: 97.0698 kg

DRUGS (1)
  1. VERAPAMIL [Suspect]
     Indication: ARTERIOSCLEROSIS CORONARY ARTERY
     Dosage: 240MG QD ORAL (047)
     Route: 048
     Dates: start: 20040105, end: 20040216

REACTIONS (2)
  - HEADACHE [None]
  - BLOOD PRESSURE INCREASED [None]
